FAERS Safety Report 13603151 (Version 2)
Quarter: 2017Q3

REPORT INFORMATION
  Report Type: Spontaneous
  Country: CZ (occurrence: CZ)
  Receive Date: 20170601
  Receipt Date: 20170704
  Transmission Date: 20171127
  Serious: Yes (Death, Other)
  Sender: FDA-Public Use
  Company Number: CZ-BRISTOL-MYERS SQUIBB COMPANY-BMS-2017-046066

PATIENT
  Sex: Female

DRUGS (1)
  1. OPDIVO [Suspect]
     Active Substance: NIVOLUMAB
     Indication: HODGKIN^S DISEASE
     Dosage: UNK UNK, Q2WK
     Route: 065
     Dates: start: 20170419, end: 20170517

REACTIONS (6)
  - Cerebral haemorrhage [Unknown]
  - Liver function test increased [Recovering/Resolving]
  - Hepatotoxicity [Unknown]
  - Death [Fatal]
  - Graft versus host disease [Unknown]
  - Ocular icterus [Unknown]

NARRATIVE: CASE EVENT DATE: 20170517
